FAERS Safety Report 8837925 (Version 1)
Quarter: 2012Q4

REPORT INFORMATION
  Report Type: 
  Country: NO (occurrence: NO)
  Receive Date: 20121012
  Receipt Date: 20121012
  Transmission Date: 20130627
  Serious: Yes (Death)
  Sender: FDA-Public Use
  Company Number: NO-ROCHE-1144496

PATIENT
  Age: 63 Year
  Sex: Male

DRUGS (1)
  1. MABTHERA [Suspect]
     Indication: RHEUMATOID ARTHRITIS
     Dosage: 2 x 1000 once a year
     Route: 065
     Dates: start: 200905

REACTIONS (1)
  - Sudden death [Fatal]
